FAERS Safety Report 7119294-7 (Version None)
Quarter: 2010Q4

REPORT INFORMATION
  Report Type: 
  Country: None (occurrence: None)
  Receive Date: 20101123
  Receipt Date: 20101112
  Transmission Date: 20110411
  Serious: No
  Sender: FDA-Public Use
  Company Number: US-PFIZER INC-2010149507

PATIENT
  Sex: Female
  Weight: 79.4 kg

DRUGS (7)
  1. PRISTIQ [Suspect]
     Indication: DEPRESSION
     Dosage: 50MG 1XDAY
     Dates: start: 20101111, end: 20101111
  2. PRISTIQ [Suspect]
     Indication: ANXIETY
  3. ZETIA [Concomitant]
     Indication: BLOOD CHOLESTEROL
  4. ALTACE [Concomitant]
     Indication: BLOOD PRESSURE INCREASED
  5. MAGNESIUM [Concomitant]
  6. CALCIUM CARBONATE [Concomitant]
  7. ASCORBIC ACID [Concomitant]
     Dosage: FREQUENCY: AS NEEDED,

REACTIONS (5)
  - ASTHENIA [None]
  - DECREASED APPETITE [None]
  - DEHYDRATION [None]
  - DIARRHOEA [None]
  - EXPIRED DRUG ADMINISTERED [None]
